FAERS Safety Report 23644860 (Version 1)
Quarter: 2024Q1

REPORT INFORMATION
  Report Type: Spontaneous
  Country: US (occurrence: None)
  Receive Date: 20240317
  Receipt Date: 20240317
  Transmission Date: 20240410
  Serious: Yes (Hospitalization, Disabling, Other)
  Sender: FDA-Public Use
  Company Number: None

PATIENT
  Age: 21 Year
  Sex: Male
  Weight: 67.5 kg

DRUGS (1)
  1. FINASTERIDE\MINOXIDIL [Suspect]
     Active Substance: FINASTERIDE\MINOXIDIL
     Indication: Alopecia
     Dosage: OTHER QUANTITY : 1 DROP(S);?FREQUENCY : TWICE A DAY;?
     Route: 061
     Dates: start: 20231216, end: 20240120

REACTIONS (28)
  - Quality of life decreased [None]
  - Vision blurred [None]
  - Vitreous floaters [None]
  - Head discomfort [None]
  - Dysphonia [None]
  - Tinnitus [None]
  - Alopecia [None]
  - Hypoaesthesia [None]
  - Hot flush [None]
  - Respiratory tract congestion [None]
  - Muscle spasms [None]
  - Facial paresis [None]
  - Depersonalisation/derealisation disorder [None]
  - Derealisation [None]
  - Brain fog [None]
  - Anhedonia [None]
  - Depression [None]
  - Anxiety [None]
  - Cognitive disorder [None]
  - Memory impairment [None]
  - Dysarthria [None]
  - Panic attack [None]
  - Loss of libido [None]
  - Testicular atrophy [None]
  - Penile size reduced [None]
  - Muscle atrophy [None]
  - Constipation [None]
  - Gingival recession [None]

NARRATIVE: CASE EVENT DATE: 20240116
